FAERS Safety Report 8052538-6 (Version None)
Quarter: 2012Q1

REPORT INFORMATION
  Report Type: 
  Country: None (occurrence: None)
  Receive Date: 20120117
  Receipt Date: 20120117
  Transmission Date: 20120608
  Serious: Yes (Hospitalization)
  Sender: FDA-Public Use
  Company Number: None

PATIENT
  Age: 89 Year
  Sex: Male
  Weight: 76.5 kg

DRUGS (2)
  1. SULFAMETHOXAZOLE AND TRIMETHOPRIM [Suspect]
     Dosage: 80/160 MG BID PO
     Route: 048
     Dates: start: 20110818, end: 20110828
  2. GABAPENTIN [Suspect]
     Dosage: 300 MG TID PO
     Route: 048
     Dates: start: 20110525, end: 20110829

REACTIONS (2)
  - MENTAL STATUS CHANGES [None]
  - RENAL FAILURE ACUTE [None]
